FAERS Safety Report 6258331-9 (Version None)
Quarter: 2009Q3

REPORT INFORMATION
  Report Type: 
  Country: None (occurrence: None)
  Receive Date: 20090707
  Receipt Date: 20090626
  Transmission Date: 20100115
  Serious: Yes (Hospitalization)
  Sender: FDA-Public Use
  Company Number: PHHO2009HK07042

PATIENT
  Sex: Male
  Weight: 67.5 kg

DRUGS (6)
  1. RAD 666 / RAD 001A [Suspect]
     Indication: HEPATIC NEOPLASM MALIGNANT
     Dosage: 5 MG
     Route: 048
     Dates: start: 20090520, end: 20090604
  2. RAD 666 / RAD 001A [Suspect]
     Dosage: 5 MG
     Route: 048
     Dates: start: 20090610, end: 20090615
  3. BLINDED NO TREATMENT RECEIVED NOMED [Suspect]
     Indication: HEPATIC NEOPLASM MALIGNANT
     Dosage: NO TREATMENT
  4. BLINDED PLACEBO COMP-PLA+ [Suspect]
     Indication: HEPATIC NEOPLASM MALIGNANT
     Dosage: NO TREATMENT
  5. BLINDED RAD 666 RAD+TAB [Suspect]
     Indication: HEPATIC NEOPLASM MALIGNANT
     Dosage: NO TREATMENT
  6. SORAFENIB [Suspect]
     Indication: HEPATIC NEOPLASM MALIGNANT
     Dosage: 800 MG
     Route: 048

REACTIONS (5)
  - ACTIVITIES OF DAILY LIVING IMPAIRED [None]
  - ARTHRALGIA [None]
  - ARTHRITIS [None]
  - CONCOMITANT DISEASE PROGRESSION [None]
  - PALINDROMIC RHEUMATISM [None]
